FAERS Safety Report 5050535-6 (Version None)
Quarter: 2006Q3

REPORT INFORMATION
  Report Type: 
  Country: None (occurrence: None)
  Receive Date: 20060707
  Receipt Date: 20060629
  Transmission Date: 20061208
  Serious: Yes (Other)
  Sender: FDA-Public Use
  Company Number: GBWYE894829JUN06

PATIENT
  Age: 54 Year
  Sex: Male

DRUGS (8)
  1. BENZHEXOL (TRIHEXYPHENIDYL) [Suspect]
     Indication: DYSTONIA
     Dosage: 1 MG 1X PER 1 DAY
     Route: 048
     Dates: start: 20060425
  2. BENZHEXOL (TRIHEXYPHENIDYL) [Suspect]
     Indication: TREMOR
     Dosage: 1 MG 1X PER 1 DAY
     Route: 048
     Dates: start: 20060425
  3. ASPIRIN TAB [Suspect]
     Dosage: 75 MG
  4. IBUPROFEN [Concomitant]
  5. LAMOTRIGINE [Concomitant]
  6. ACETAMINOPHEN [Concomitant]
  7. PRAVASTATIN [Concomitant]
  8. PROPRANOLOL [Concomitant]

REACTIONS (3)
  - AMNESIA [None]
  - HALLUCINATIONS, MIXED [None]
  - VISION BLURRED [None]
